FAERS Safety Report 21646532 (Version 1)
Quarter: 2022Q4

REPORT INFORMATION
  Report Type: Spontaneous
  Country: None (occurrence: HU)
  Receive Date: 20221126
  Receipt Date: 20221126
  Transmission Date: 20230112
  Serious: Yes (Disabling)
  Sender: FDA-Public Use
  Company Number: HU-B.Braun Medical Inc.-2135265

PATIENT
  Age: 68 Year
  Sex: Male

DRUGS (19)
  1. BUPIVACAINE HYDROCHLORIDE WITH DEXTROSE [Suspect]
     Active Substance: BUPIVACAINE HYDROCHLORIDE
     Indication: Epidural anaesthesia
     Dates: start: 20200117, end: 20200117
  2. PROPOFOL [Suspect]
     Active Substance: PROPOFOL
     Dates: start: 20200117, end: 20200117
  3. ACETAMINOPHEN [Suspect]
     Active Substance: ACETAMINOPHEN
     Dates: start: 20200117, end: 20200117
  4. ONDANSETRON [Suspect]
     Active Substance: ONDANSETRON
     Dates: start: 20200117, end: 20200117
  5. ENOXAPARIN SODIUM [Suspect]
     Active Substance: ENOXAPARIN SODIUM
     Dates: start: 20200117, end: 20200117
  6. CLAFORAN [Suspect]
     Active Substance: CEFOTAXIME SODIUM
     Dates: start: 20200101, end: 20200129
  7. CONTROLOC [Suspect]
     Active Substance: PANTOPRAZOLE SODIUM
     Dates: start: 20200117, end: 20200129
  8. TRAMADOL [Suspect]
     Active Substance: TRAMADOL
     Dates: start: 20200120, end: 20200120
  9. UNSPECIFIED INGREDIENT [Suspect]
     Active Substance: UNSPECIFIED INGREDIENT
     Dates: start: 20200117, end: 20200117
  10. SUFENTANIL CITRATE [Suspect]
     Active Substance: SUFENTANIL CITRATE
     Dates: start: 20200117, end: 20200117
  11. LIDOCAINE [Suspect]
     Active Substance: LIDOCAINE
     Dates: start: 20200117, end: 20200117
  12. BRIDION [Suspect]
     Active Substance: SUGAMMADEX
     Dates: start: 20200117, end: 20200117
  13. DROTAVERINE HYDROCHLORIDE [Suspect]
     Active Substance: DROTAVERINE HYDROCHLORIDE
     Dates: start: 20200120, end: 20200120
  14. FENTANYL [Suspect]
     Active Substance: FENTANYL
     Dates: start: 20200117, end: 20200117
  15. ROCURONIUM BROMIDE [Suspect]
     Active Substance: ROCURONIUM BROMIDE
     Dates: start: 20200117, end: 20200117
  16. XANAX [Suspect]
     Active Substance: ALPRAZOLAM
     Dates: start: 20200117, end: 20200117
  17. METRONIDAZOLE [Suspect]
     Active Substance: METRONIDAZOLE
     Dates: start: 20200117, end: 20200117
  18. ADRENALIN [Suspect]
     Active Substance: EPINEPHRINE
     Dates: start: 20200117, end: 20200117
  19. SUPRAX [Suspect]
     Active Substance: CEFIXIME
     Dates: start: 20200122, end: 20200127

REACTIONS (1)
  - Deafness neurosensory [Not Recovered/Not Resolved]

NARRATIVE: CASE EVENT DATE: 20200124
